FAERS Safety Report 25303277 (Version 3)
Quarter: 2025Q3

REPORT INFORMATION
  Report Type: Spontaneous
  Country: EU (occurrence: EU)
  Receive Date: 20250512
  Receipt Date: 20250729
  Transmission Date: 20251021
  Serious: Yes (Hospitalization, Other)
  Sender: JOHNSON AND JOHNSON
  Company Number: EU-Accord-483045

PATIENT
  Age: 73 Year
  Sex: Male

DRUGS (2)
  1. ABIRATERONE [Suspect]
     Active Substance: ABIRATERONE
     Indication: Prostate cancer metastatic
     Dosage: STRENGTH: 500MG (2 TABLETS OF 500 MG) 1 GRAM/DAY (1000 MG)
     Route: 048
     Dates: start: 202304, end: 20250410
  2. PREDNISONE [Suspect]
     Active Substance: PREDNISONE
     Indication: Product used for unknown indication
     Route: 048
     Dates: start: 202304

REACTIONS (4)
  - Hypokalaemia [Recovered/Resolved]
  - Cardio-respiratory arrest [Recovered/Resolved]
  - Renal tubular disorder [Unknown]
  - Cardiac arrest [Recovered/Resolved]

NARRATIVE: CASE EVENT DATE: 20250101
